FAERS Safety Report 8523653-5 (Version None)
Quarter: 2012Q2

REPORT INFORMATION
  Report Type: 
  Country: None (occurrence: None)
  Receive Date: 20120406
  Receipt Date: 20100723
  Transmission Date: 20120825
  Serious: Yes (Other)
  Sender: FDA-Public Use
  Company Number: PHHY2010US27742

PATIENT
  Age: 43 Year
  Sex: Female

DRUGS (1)
  1. TASIGNA [Suspect]
     Indication: CHRONIC MYELOID LEUKAEMIA
     Dosage: 400 MG, BID, ORAL
     Route: 048
     Dates: start: 20100406

REACTIONS (10)
  - ASTHENIA [None]
  - PANCREATITIS [None]
  - BLOOD PRESSURE DECREASED [None]
  - ABDOMINAL PAIN UPPER [None]
  - FATIGUE [None]
  - CHEST DISCOMFORT [None]
  - HEART RATE INCREASED [None]
  - ABDOMINAL PAIN [None]
  - EATING DISORDER [None]
  - ABDOMINAL DISTENSION [None]
